FAERS Safety Report 4580561-2 (Version None)
Quarter: 2005Q1

REPORT INFORMATION
  Report Type: 
  Country: None (occurrence: None)
  Receive Date: 20050214
  Receipt Date: 20040413
  Transmission Date: 20050727
  Serious: No
  Sender: FDA-Public Use
  Company Number: US-GLAXOSMITHKLINE-A0506906A

PATIENT
  Age: 59 Year
  Sex: Male
  Weight: 90.9 kg

DRUGS (5)
  1. LAMICTAL [Suspect]
     Dosage: 300MG PER DAY
     Route: 048
     Dates: start: 20020801, end: 20040405
  2. DEPAKOTE [Concomitant]
     Indication: BIPOLAR DISORDER
     Route: 048
     Dates: start: 19990101
  3. KLONOPIN [Concomitant]
     Indication: DRUG USE FOR UNKNOWN INDICATION
     Dosage: .5MG AT NIGHT
     Route: 048
     Dates: start: 19900101
  4. LIPITOR [Concomitant]
     Dosage: 10MG AT NIGHT
     Route: 048
     Dates: start: 20000101
  5. ATENOLOL [Concomitant]
     Indication: HYPERTENSION
     Dosage: 50MG PER DAY
     Route: 048
     Dates: start: 20000101

REACTIONS (1)
  - DYSPHEMIA [None]
